FAERS Safety Report 23629019 (Version 2)
Quarter: 2024Q1

REPORT INFORMATION
  Report Type: Spontaneous
  Country: US (occurrence: US)
  Receive Date: 20240313
  Receipt Date: 20240326
  Transmission Date: 20240410
  Serious: No
  Sender: FDA-Public Use
  Company Number: US-Calliditas-2024CAL00367

PATIENT
  Age: 58 Year
  Sex: Male

DRUGS (7)
  1. TARPEYO [Suspect]
     Active Substance: BUDESONIDE
     Indication: IgA nephropathy
     Dosage: 16MG (4MG CAPSULES) ONCE DAILY
     Route: 048
     Dates: start: 20240217
  2. LISINOPRIL [Concomitant]
     Active Substance: LISINOPRIL
  3. FARXIGA [Concomitant]
     Active Substance: DAPAGLIFLOZIN PROPANEDIOL
  4. ALLOPURINOL [Concomitant]
     Active Substance: ALLOPURINOL
  5. OMEGA-3 FATTY ACIDS [Concomitant]
     Active Substance: OMEGA-3 FATTY ACIDS
  6. ROSUVASTATIN [Concomitant]
     Active Substance: ROSUVASTATIN
  7. VITAMINS [Concomitant]
     Active Substance: VITAMINS

REACTIONS (2)
  - Fatigue [Recovered/Resolved]
  - Increased appetite [Not Recovered/Not Resolved]

NARRATIVE: CASE EVENT DATE: 20240215
